FAERS Safety Report 13106508 (Version 1)
Quarter: 2017Q1

REPORT INFORMATION
  Report Type: Spontaneous
  Country: US (occurrence: US)
  Receive Date: 20170111
  Receipt Date: 20170111
  Transmission Date: 20170428
  Serious: Yes (Other)
  Sender: FDA-Public Use
  Company Number: US-TEVA-728305USA

PATIENT
  Age: 77 Year
  Sex: Male

DRUGS (1)
  1. BUDESONIDE. [Suspect]
     Active Substance: BUDESONIDE
     Dosage: 0.25 MG / 2 ML

REACTIONS (5)
  - Lichen planus [Unknown]
  - Dyspnoea [Unknown]
  - Adverse event [Unknown]
  - Oesophageal stenosis [Unknown]
  - Product preparation error [Unknown]
